FAERS Safety Report 9701269 (Version 2)
Quarter: 2013Q4

REPORT INFORMATION
  Report Type: Spontaneous
  Country: US (occurrence: US)
  Receive Date: 20131121
  Receipt Date: 20131121
  Transmission Date: 20140711
  Serious: No
  Sender: FDA-Public Use
  Company Number: US-GILEAD-2008-0016187

PATIENT
  Age: 59 Year
  Sex: Male
  Weight: 104.33 kg

DRUGS (18)
  1. LETAIRIS [Suspect]
     Indication: PULMONARY ARTERIAL HYPERTENSION
     Route: 048
     Dates: start: 20080401
  2. LASIX [Concomitant]
     Route: 048
  3. LIPITOR [Concomitant]
     Route: 048
  4. NEURONTIN [Concomitant]
     Route: 048
  5. VICODIN [Concomitant]
     Route: 048
  6. GLUCOPHAGE [Concomitant]
     Route: 048
  7. UNIVASC [Concomitant]
     Route: 048
  8. ATENOLOL [Concomitant]
     Route: 048
  9. LISINOPRIL [Concomitant]
     Route: 048
  10. GLYBURIDE [Concomitant]
     Route: 048
  11. TIAZAC [Concomitant]
     Route: 048
  12. ASPIRIN [Concomitant]
     Route: 048
  13. ALBUTEROL [Concomitant]
     Route: 054
  14. ADVAIR [Concomitant]
     Route: 055
  15. MULTIVITAMINS [Concomitant]
     Route: 048
  16. ACTOS [Concomitant]
     Route: 048
  17. POTASSIUM CHLORIDE [Concomitant]
     Route: 048
  18. VITAMIN B COMPLEX [Concomitant]
     Route: 048

REACTIONS (1)
  - Tremor [Recovered/Resolved]
